FAERS Safety Report 7645239-7 (Version None)
Quarter: 2011Q3

REPORT INFORMATION
  Report Type: 
  Country: None (occurrence: None)
  Receive Date: 20110729
  Receipt Date: 20110722
  Transmission Date: 20111222
  Serious: Yes (Hospitalization, Disabling, Other)
  Sender: FDA-Public Use
  Company Number: US-MERCK-1104USA01934

PATIENT
  Age: 55 Year
  Sex: Female
  Weight: 50 kg

DRUGS (11)
  1. FOSAMAX [Suspect]
     Route: 048
     Dates: start: 20011114, end: 20060101
  2. FOSAMAX [Suspect]
     Route: 048
     Dates: start: 20011114, end: 20060101
  3. VITAMINS (UNSPECIFIED) [Concomitant]
     Route: 048
     Dates: start: 19610101
  4. HORMONES (UNSPECIFIED) [Concomitant]
     Indication: OESTROGEN DEFICIENCY
     Route: 048
     Dates: start: 19990101
  5. FOSAMAX [Suspect]
     Route: 048
     Dates: end: 20090101
  6. FOSAMAX PLUS D [Suspect]
     Indication: VITAMIN D DEFICIENCY
     Route: 048
     Dates: start: 20070205, end: 20070101
  7. FOSAMAX [Suspect]
     Indication: VITAMIN D
     Route: 048
     Dates: start: 19990412, end: 20010101
  8. FOSAMAX [Suspect]
     Route: 048
     Dates: end: 20090101
  9. FOSAMAX PLUS D [Suspect]
     Indication: OSTEOPOROSIS
     Route: 048
     Dates: start: 20070205, end: 20070101
  10. CORTICOSTEROIDS (UNSPECIFIED) [Suspect]
     Indication: ASTHMA
     Route: 048
     Dates: start: 19780101
  11. FOSAMAX [Suspect]
     Indication: OSTEOPOROSIS
     Route: 048
     Dates: start: 19990412, end: 20010101

REACTIONS (41)
  - MASTOID DISORDER [None]
  - OROPHARYNGEAL PAIN [None]
  - EAR DISORDER [None]
  - TOOTH DISORDER [None]
  - HYPERTENSION [None]
  - DIVERTICULITIS [None]
  - FEMUR FRACTURE [None]
  - BREAST DISORDER [None]
  - BRONCHITIS [None]
  - FALLOPIAN TUBE DISORDER [None]
  - STATUS ASTHMATICUS [None]
  - MUSCULOSKELETAL PAIN [None]
  - OSTEOPOROSIS [None]
  - FALL [None]
  - LOWER LIMB FRACTURE [None]
  - ARTHROPATHY [None]
  - GASTROINTESTINAL DISORDER [None]
  - EAR INFECTION [None]
  - HAEMORRHOIDS [None]
  - OSTEOARTHRITIS [None]
  - COAGULOPATHY [None]
  - TONSILLAR DISORDER [None]
  - ROTATOR CUFF SYNDROME [None]
  - BURSITIS [None]
  - GASTROOESOPHAGEAL REFLUX DISEASE [None]
  - LIPIDS ABNORMAL [None]
  - SKIN INFECTION [None]
  - GLUCOSE TOLERANCE IMPAIRED [None]
  - ROAD TRAFFIC ACCIDENT [None]
  - NIGHT SWEATS [None]
  - HYPERLIPIDAEMIA [None]
  - ADENOIDAL DISORDER [None]
  - ORAL CANDIDIASIS [None]
  - STRESS FRACTURE [None]
  - VAGINAL INFECTION [None]
  - MENOPAUSE [None]
  - LOW TURNOVER OSTEOPATHY [None]
  - ORAL HERPES [None]
  - SINUS DISORDER [None]
  - FOOT FRACTURE [None]
  - CHEST PAIN [None]
